FAERS Safety Report 6398203-2 (Version None)
Quarter: 2009Q4

REPORT INFORMATION
  Report Type: 
  Country: None (occurrence: None)
  Receive Date: 20091013
  Receipt Date: 20090930
  Transmission Date: 20100525
  Serious: Yes (Other)
  Sender: FDA-Public Use
  Company Number: PHHY2009ZA39038

PATIENT
  Age: 35 Year
  Sex: Female

DRUGS (1)
  1. GLEEVEC [Suspect]
     Dosage: 300 MG, UNK

REACTIONS (2)
  - BONE MARROW DISORDER [None]
  - FULL BLOOD COUNT DECREASED [None]
